FAERS Safety Report 4493590-4 (Version None)
Quarter: 2004Q4

REPORT INFORMATION
  Report Type: 
  Country: None (occurrence: None)
  Receive Date: 20041102
  Receipt Date: 20041018
  Transmission Date: 20050328
  Serious: Yes (Other)
  Sender: FDA-Public Use
  Company Number: USA041081440

PATIENT
  Age: 76 Year
  Sex: Female

DRUGS (5)
  1. EVISTA [Suspect]
     Dates: start: 19980101, end: 19990101
  2. HIGH BLOOD PRESSURE MEDICATION [Concomitant]
  3. THYROID TAB [Concomitant]
  4. ASPIRIN [Concomitant]
  5. CALCIUM [Concomitant]

REACTIONS (9)
  - ASTHENIA [None]
  - BODY HEIGHT DECREASED [None]
  - CONSTIPATION [None]
  - GASTRIC DISORDER [None]
  - GASTROINTESTINAL PAIN [None]
  - MUSCLE CRAMP [None]
  - MUSCULAR WEAKNESS [None]
  - NAUSEA [None]
  - TRANSIENT ISCHAEMIC ATTACK [None]
